FAERS Safety Report 13881065 (Version 1)
Quarter: 2017Q3

REPORT INFORMATION
  Report Type: Spontaneous
  Country: GB (occurrence: GB)
  Receive Date: 20170818
  Receipt Date: 20170818
  Transmission Date: 20171127
  Serious: Yes (Other)
  Sender: FDA-Public Use
  Company Number: GB-AUROBINDO-AUR-APL-2017-38809

PATIENT
  Age: 72 Year
  Sex: Female
  Weight: 70.3 kg

DRUGS (3)
  1. VALSARTAN. [Suspect]
     Active Substance: VALSARTAN
     Indication: BLOOD PRESSURE INCREASED
     Dosage: 80 MG, UNK
     Route: 048
     Dates: start: 20170413, end: 20170426
  2. AMITRIPTYLINE [Concomitant]
     Active Substance: AMITRIPTYLINE
     Indication: PRODUCT USED FOR UNKNOWN INDICATION
     Dosage: OCCASIONALLY
     Route: 065
  3. PARACETAMOL [Concomitant]
     Active Substance: ACETAMINOPHEN
     Indication: PRODUCT USED FOR UNKNOWN INDICATION
     Route: 065

REACTIONS (7)
  - Peripheral swelling [Recovered/Resolved]
  - Contusion [Recovered/Resolved]
  - Rash pruritic [Recovered/Resolved]
  - Pain [Recovered/Resolved]
  - Inflammation [Recovered/Resolved]
  - Feeling abnormal [Recovered/Resolved]
  - Gastric disorder [Recovered/Resolved]
